FAERS Safety Report 21145858 (Version 2)
Quarter: 2022Q3

REPORT INFORMATION
  Report Type: Spontaneous
  Country: US (occurrence: US)
  Receive Date: 20220729
  Receipt Date: 20220913
  Transmission Date: 20221026
  Serious: Yes (Other)
  Sender: FDA-Public Use
  Company Number: US-SUN PHARMACEUTICAL INDUSTRIES LTD-2022R1-346282

PATIENT
  Age: 41 Year
  Sex: Male

DRUGS (1)
  1. TESTOSTERONE [Suspect]
     Active Substance: TESTOSTERONE
     Indication: Blood testosterone decreased
     Dosage: UNK
     Route: 065
     Dates: start: 20210420

REACTIONS (6)
  - Injection site movement impairment [Unknown]
  - Injection site rash [Unknown]
  - Recalled product administered [Unknown]
  - Recalled product [Unknown]
  - Self-medication [Unknown]
  - Injection site pain [Unknown]

NARRATIVE: CASE EVENT DATE: 20210212
